FAERS Safety Report 9475236 (Version 1)
Quarter: 2013Q3

REPORT INFORMATION
  Report Type: Spontaneous
  Country: FR (occurrence: None)
  Receive Date: 20130820
  Receipt Date: 20130820
  Transmission Date: 20140515
  Serious: Yes (Disabling)
  Sender: FDA-Public Use
  Company Number: SYM-2013-05999

PATIENT
  Sex: Female

DRUGS (5)
  1. FLAGYL [Suspect]
     Indication: HIDRADENITIS
     Dosage: 3 IN 1 D
     Route: 048
     Dates: start: 20130626, end: 20130706
  2. PROZAC (FLUOXETINE HYDROCHLORIDE) (FLUOXETINE HYDROCHLORIDE) [Concomitant]
  3. ROCEPHINE (CEFTRIAXONE SODUM) (CETRIAXONE SODIUM) [Concomitant]
  4. IMOVANE (ZOPICLONE) (ZOPICLONE) [Concomitant]
  5. THERALENE (ALMEMAZINE TARTRATE) (ALIMEMAZINE TARTRATE) [Concomitant]

REACTIONS (6)
  - Dysgeusia [None]
  - Nausea [None]
  - Dizziness [None]
  - Depressed mood [None]
  - Depression [None]
  - Fatigue [None]
